FAERS Safety Report 13462623 (Version 1)
Quarter: 2017Q2

REPORT INFORMATION
  Report Type: Spontaneous
  Country: AU (occurrence: AU)
  Receive Date: 20170420
  Receipt Date: 20170420
  Transmission Date: 20170830
  Serious: Yes (Hospitalization, Disabling)
  Sender: FDA-Public Use
  Company Number: AU-ASTRAZENECA-2017SE40624

PATIENT
  Age: 68 Year
  Sex: Male
  Weight: 80 kg

DRUGS (15)
  1. DIAZEPAM. [Concomitant]
     Active Substance: DIAZEPAM
  2. PANTOPRAZOLE [Concomitant]
     Active Substance: PANTOPRAZOLE
  3. ADENOSINE. [Concomitant]
     Active Substance: ADENOSINE
  4. DAPTOMYCIN. [Suspect]
     Active Substance: DAPTOMYCIN
     Dosage: 850 MG, DAILY FOR 2 DOSES ONLY; UNKNOWN
     Route: 042
     Dates: start: 20161102, end: 20161103
  5. GENTAMICIN SULFATE. [Concomitant]
     Active Substance: GENTAMICIN SULFATE
  6. ONDANSETRON [Concomitant]
     Active Substance: ONDANSETRON
  7. THIAMINE. [Concomitant]
     Active Substance: THIAMINE
  8. ASPIRIN. [Concomitant]
     Active Substance: ASPIRIN
  9. CLEXANE [Concomitant]
     Active Substance: ENOXAPARIN SODIUM
  10. ACETAMINOPHEN. [Concomitant]
     Active Substance: ACETAMINOPHEN
  11. VITAMINS NOS [Concomitant]
     Active Substance: VITAMINS
  12. VANCOMYCIN [Concomitant]
     Active Substance: VANCOMYCIN
  13. ROSUVASTATIN. [Suspect]
     Active Substance: ROSUVASTATIN
     Route: 048
     Dates: end: 20161103
  14. MORPHINE [Concomitant]
     Active Substance: MORPHINE
  15. FLOXACILLIN [Concomitant]
     Active Substance: FLUCLOXACILLIN

REACTIONS (2)
  - Acute kidney injury [Not Recovered/Not Resolved]
  - Blood creatine phosphokinase increased [Not Recovered/Not Resolved]

NARRATIVE: CASE EVENT DATE: 20161102
